FAERS Safety Report 10057167 (Version 2)
Quarter: 2014Q2

REPORT INFORMATION
  Report Type: Spontaneous
  Country: BR (occurrence: BR)
  Receive Date: 20140403
  Receipt Date: 20140403
  Transmission Date: 20141212
  Serious: Yes (Hospitalization)
  Sender: FDA-Public Use
  Company Number: BR-B.I. PHARMACEUTICALS,INC./RIDGEFIELD-2014-BI-10575BR

PATIENT
  Age: 80 Year
  Sex: Female
  Weight: 80 kg

DRUGS (5)
  1. MICARDIS [Suspect]
     Indication: HYPERTENSION
     Dosage: 160 MG
     Route: 048
     Dates: start: 2012, end: 20140329
  2. MICARDIS [Suspect]
     Dosage: 80 MG
     Route: 048
     Dates: start: 20140330
  3. LEVOFLOXACINA [Concomitant]
     Indication: URINARY TRACT INFECTION
     Dosage: 500 MG
     Route: 048
     Dates: start: 20140306, end: 20140312
  4. CAPTOPRIL [Concomitant]
     Indication: HYPERTENSION
     Route: 048
     Dates: start: 20140224, end: 20140308
  5. MARACUGINA [Concomitant]
     Indication: SLEEP DISORDER
     Dosage: MARACUGINA HALF A CUP DAILY
     Route: 048
     Dates: start: 20140307

REACTIONS (6)
  - Infarction [Recovered/Resolved]
  - Blood pressure increased [Recovered/Resolved]
  - Mental disorder [Recovered/Resolved]
  - Pneumonia [Recovered/Resolved]
  - Pyrexia [Recovered/Resolved]
  - Urinary tract infection [Recovered/Resolved]
